FAERS Safety Report 5789408-X (Version None)
Quarter: 2008Q2

REPORT INFORMATION
  Report Type: 
  Country: None (occurrence: None)
  Receive Date: 20080626
  Receipt Date: 20080620
  Transmission Date: 20081010
  Serious: Yes (Hospitalization)
  Sender: FDA-Public Use
  Company Number: FR-AVENTIS-200811379FR

PATIENT
  Age: 76 Year
  Sex: Female

DRUGS (6)
  1. LASILIX                            /00032601/ [Suspect]
     Indication: DRUG USE FOR UNKNOWN INDICATION
     Route: 048
     Dates: end: 20080311
  2. CORDARONE [Suspect]
     Indication: ATRIAL FIBRILLATION
     Route: 048
     Dates: start: 20071101
  3. CORDARONE [Suspect]
     Route: 048
     Dates: start: 20080104, end: 20080311
  4. VASOBRAL                           /00788201/ [Suspect]
     Indication: DRUG USE FOR UNKNOWN INDICATION
     Route: 048
     Dates: end: 20080311
  5. PREVISCAN                          /00789001/ [Concomitant]
     Indication: DRUG USE FOR UNKNOWN INDICATION
     Route: 048
  6. EZETROL [Concomitant]
     Indication: DRUG USE FOR UNKNOWN INDICATION
     Route: 048

REACTIONS (4)
  - ASTHENIA [None]
  - FACE OEDEMA [None]
  - HYPOTHYROIDISM [None]
  - WEIGHT INCREASED [None]
